FAERS Safety Report 18843387 (Version 1)
Quarter: 2021Q1

REPORT INFORMATION
  Report Type: Spontaneous
  Country: US (occurrence: US)
  Receive Date: 20210203
  Receipt Date: 20210203
  Transmission Date: 20210419
  Serious: No
  Sender: FDA-Public Use
  Company Number: US-INTERSECT ENT, INC.-2106305

PATIENT
  Age: 45 Year
  Sex: Male

DRUGS (1)
  1. SINUVA [Suspect]
     Active Substance: MOMETASONE FUROATE
     Indication: CHRONIC RHINOSINUSITIS WITH NASAL POLYPS
     Route: 006
     Dates: start: 20191024, end: 20200113

REACTIONS (1)
  - Scab [None]

NARRATIVE: CASE EVENT DATE: 20200113
